FAERS Safety Report 5806468-8 (Version None)
Quarter: 2008Q3

REPORT INFORMATION
  Report Type: 
  Country: None (occurrence: None)
  Receive Date: 20080710
  Receipt Date: 20070817
  Transmission Date: 20090109
  Serious: No
  Sender: FDA-Public Use
  Company Number: US-BAYER-US-2007-031141

PATIENT
  Sex: Female

DRUGS (1)
  1. CAMPATH [Suspect]
     Dates: start: 20070801, end: 20070801

REACTIONS (1)
  - ACCIDENTAL EXPOSURE [None]
